FAERS Safety Report 21107075 (Version 3)
Quarter: 2022Q4

REPORT INFORMATION
  Report Type: Report from Study
  Country: FR (occurrence: None)
  Receive Date: 20220720
  Receipt Date: 20221004
  Transmission Date: 20230112
  Serious: Yes (Other)
  Sender: FDA-Public Use
  Company Number: 2022A250150

PATIENT
  Age: 64 Year
  Sex: Female

DRUGS (21)
  1. DURVALUMAB [Suspect]
     Active Substance: DURVALUMAB
     Indication: Non-small cell lung cancer
     Route: 042
     Dates: start: 20220201, end: 20220527
  2. CERALASERTIB [Suspect]
     Active Substance: CERALASERTIB
     Indication: Non-small cell lung cancer
     Route: 048
     Dates: start: 20220125, end: 20220125
  3. CERALASERTIB [Suspect]
     Active Substance: CERALASERTIB
     Indication: Non-small cell lung cancer
     Route: 048
     Dates: start: 20220126, end: 20220131
  4. CERALASERTIB [Suspect]
     Active Substance: CERALASERTIB
     Indication: Non-small cell lung cancer
     Route: 048
     Dates: start: 20220222, end: 20220228
  5. CERALASERTIB [Suspect]
     Active Substance: CERALASERTIB
     Indication: Non-small cell lung cancer
     Route: 048
     Dates: start: 20220322, end: 20220322
  6. CERALASERTIB [Suspect]
     Active Substance: CERALASERTIB
     Indication: Non-small cell lung cancer
     Route: 048
     Dates: start: 20220323, end: 20220328
  7. CERALASERTIB [Suspect]
     Active Substance: CERALASERTIB
     Indication: Non-small cell lung cancer
     Route: 048
     Dates: start: 20220419, end: 20220425
  8. CERALASERTIB [Suspect]
     Active Substance: CERALASERTIB
     Indication: Non-small cell lung cancer
     Route: 048
     Dates: start: 20220520, end: 20220521
  9. CERALASERTIB [Suspect]
     Active Substance: CERALASERTIB
     Indication: Non-small cell lung cancer
     Route: 048
     Dates: start: 20220522, end: 20220522
  10. CERALASERTIB [Suspect]
     Active Substance: CERALASERTIB
     Indication: Non-small cell lung cancer
     Route: 048
     Dates: start: 20220523, end: 20220526
  11. FENTANYL [Concomitant]
     Active Substance: FENTANYL
     Indication: Tumour pain
     Route: 061
  12. OXYCODONE HYDROCHLORIDE [Concomitant]
     Active Substance: OXYCODONE HYDROCHLORIDE
     Indication: Tumour pain
     Route: 048
  13. ACETAMINOPHEN [Concomitant]
     Active Substance: ACETAMINOPHEN
     Indication: Tumour pain
     Dosage: 1.0G AS REQUIRED
     Route: 048
     Dates: start: 202002, end: 20220629
  14. INNOHEP [Concomitant]
     Active Substance: TINZAPARIN SODIUM
     Indication: Peripheral arterial occlusive disease
     Route: 058
  15. PLAVIX [Concomitant]
     Active Substance: CLOPIDOGREL BISULFATE
     Indication: Peripheral arterial occlusive disease
     Route: 048
  16. BISOPROLOL UMARATE [Concomitant]
     Indication: Hypertension
     Route: 048
     Dates: start: 202002
  17. HYDROCHLOROTHIAZIDE [Concomitant]
     Active Substance: HYDROCHLOROTHIAZIDE
     Indication: Hypertension
     Route: 048
     Dates: start: 202002
  18. LERCANIDIPINE [Concomitant]
     Active Substance: LERCANIDIPINE
     Indication: Hypertension
     Route: 048
     Dates: start: 202002
  19. POTASSIUM CHLORIDE [Concomitant]
     Active Substance: POTASSIUM CHLORIDE
     Indication: Prophylaxis
     Route: 048
     Dates: start: 202002
  20. SIMVASTATIN [Concomitant]
     Active Substance: SIMVASTATIN
     Indication: Hypercholesterolaemia
     Route: 048
     Dates: start: 202002, end: 20220629
  21. PRIMPERAN [Concomitant]
     Active Substance: METOCLOPRAMIDE HYDROCHLORIDE
     Indication: Nausea
     Dosage: 10.0MG AS REQUIRED
     Route: 048
     Dates: start: 20220125

REACTIONS (1)
  - Hepatic cytolysis [Recovered/Resolved]

NARRATIVE: CASE EVENT DATE: 20220622
